FAERS Safety Report 9040257 (Version 1)
Quarter: 2013Q1

REPORT INFORMATION
  Report Type: Report from Study
  Country: US (occurrence: US)
  Receive Date: 20130129
  Receipt Date: 20130129
  Transmission Date: 20140127
  Serious: No
  Sender: FDA-Public Use
  Company Number: US-ABBOTT-12P-163-0895437-00

PATIENT
  Sex: Female
  Weight: 78.54 kg

DRUGS (9)
  1. HUMIRA 40 MG/0.8 ML PEN [Suspect]
     Indication: PSORIATIC ARTHROPATHY
     Dates: start: 2004
  2. GABAPENTIN [Concomitant]
     Indication: DIABETIC NEUROPATHY
  3. MORPHINE [Concomitant]
     Indication: PAIN
  4. VITAMIN B-12 [Concomitant]
     Indication: PERNICIOUS ANAEMIA
  5. TOPROL [Concomitant]
     Indication: HYPERTENSION
  6. ENALAPRIL [Concomitant]
     Indication: HYPERTENSION
  7. LEVOXYL [Concomitant]
     Indication: HYPOTHYROIDISM
  8. UNSPECIFIED INGREDIENT [Concomitant]
     Indication: DEPRESSION
  9. SIMVASTATIN [Concomitant]
     Indication: BLOOD CHOLESTEROL INCREASED

REACTIONS (3)
  - Joint swelling [Recovered/Resolved]
  - Migraine [Recovered/Resolved]
  - Arthralgia [Recovering/Resolving]
